FAERS Safety Report 9296767 (Version 1)
Quarter: 2013Q2

REPORT INFORMATION
  Report Type: Spontaneous
  Country: US (occurrence: None)
  Receive Date: 20130515
  Receipt Date: 20130515
  Transmission Date: 20140414
  Serious: Yes (Hospitalization)
  Sender: FDA-Public Use
  Company Number: NSR_01134_2013

PATIENT
  Age: 21 Year
  Sex: Male

DRUGS (2)
  1. BACLOFEN [Suspect]
     Indication: MUSCLE SPASTICITY
     Route: 037
  2. BACLOFEN [Suspect]
     Indication: AUTONOMIC NERVOUS SYSTEM IMBALANCE
     Route: 037

REACTIONS (8)
  - Wound secretion [None]
  - Muscle spasms [None]
  - Tachycardia [None]
  - Tachypnoea [None]
  - Muscle twitching [None]
  - Hyperhidrosis [None]
  - Muscle spasticity [None]
  - Drug withdrawal syndrome [None]
